FAERS Safety Report 5888239-X (Version None)
Quarter: 2008Q3

REPORT INFORMATION
  Report Type: 
  Country: None (occurrence: None)
  Receive Date: 20080918
  Receipt Date: 20080909
  Transmission Date: 20090109
  Serious: Yes (Other)
  Sender: FDA-Public Use
  Company Number: BE-ASTRAZENECA-2008AC02438

PATIENT
  Sex: Female

DRUGS (1)
  1. EMLA [Suspect]
     Dosage: LESS THAN 1 G

REACTIONS (2)
  - PARAESTHESIA [None]
  - PERIPHERAL PARALYSIS [None]
